FAERS Safety Report 25308152 (Version 1)
Quarter: 2025Q2

REPORT INFORMATION
  Report Type: Spontaneous
  Country: US (occurrence: US)
  Receive Date: 20250513
  Receipt Date: 20250513
  Transmission Date: 20250717
  Serious: No
  Sender: MEITHEAL PHARMACEUTICALS
  Company Number: US-MEITHEAL-2025MPSPO00087

PATIENT
  Sex: Female

DRUGS (2)
  1. CETRORELIX ACETATE [Suspect]
     Active Substance: CETRORELIX ACETATE
     Indication: Product used for unknown indication
     Route: 065
  2. CETRORELIX ACETATE [Suspect]
     Active Substance: CETRORELIX ACETATE

REACTIONS (2)
  - Product dispensing error [Unknown]
  - No adverse event [Unknown]
